FAERS Safety Report 4747247-2 (Version None)
Quarter: 2005Q3

REPORT INFORMATION
  Report Type: 
  Country: None (occurrence: None)
  Receive Date: 20050815
  Receipt Date: 20050606
  Transmission Date: 20060218
  Serious: Yes (Hospitalization, Other)
  Sender: FDA-Public Use
  Company Number: USA050495227

PATIENT
  Age: 79 Year
  Sex: Male
  Weight: 78 kg

DRUGS (24)
  1. CIALIS [Suspect]
     Indication: ERECTILE DYSFUNCTION
     Dosage: 20 MG
     Dates: start: 20041001
  2. LISINOPRIL [Concomitant]
  3. TESTOSTERONE [Concomitant]
  4. LIPITOR [Concomitant]
  5. INDAPAMIDE [Concomitant]
  6. KLONOPIN [Concomitant]
  7. ASPIRIN [Concomitant]
  8. SAW PALMETTO [Concomitant]
  9. PSYLLIUM [Concomitant]
  10. XALATAN [Concomitant]
  11. CHONDROITIN W/ GLUCOSAMINE [Concomitant]
  12. CALCIUM MAGNESIUM [Concomitant]
  13. POTASSIUM CHLORIDE [Concomitant]
  14. GRAPE SEED [Concomitant]
  15. YEAST [Concomitant]
  16. BIOIDENTICAL HORMONES [Concomitant]
  17. FOLATE SODIUM [Concomitant]
  18. AVAPRO [Concomitant]
  19. MULTI-VITAMIN [Concomitant]
  20. ELDEPRYL [Concomitant]
  21. HYDROCHLOROTHIAZIDE [Concomitant]
  22. CLONIDINE [Concomitant]
  23. TYLENOL  /SCH/ (PARACETAMOL) [Concomitant]
  24. RESTORIL [Concomitant]

REACTIONS (2)
  - CEREBROVASCULAR ACCIDENT [None]
  - DRUG INEFFECTIVE [None]
